FAERS Safety Report 18943392 (Version 2)
Quarter: 2021Q1

REPORT INFORMATION
  Report Type: Report from Study
  Country: BE (occurrence: BE)
  Receive Date: 20210226
  Receipt Date: 20210310
  Transmission Date: 20210420
  Serious: Yes (Hospitalization, Other)
  Sender: FDA-Public Use
  Company Number: BE-BRISTOL-MYERS SQUIBB COMPANY-BMS-2021-016712

PATIENT
  Age: 69 Year
  Sex: Male

DRUGS (10)
  1. GEMCITABINE HYDROCHLORIDE. [Suspect]
     Active Substance: GEMCITABINE HYDROCHLORIDE
     Indication: NON-HODGKIN^S LYMPHOMA UNSPECIFIED HISTOLOGY AGGRESSIVE
     Dosage: 1900 MILLIGRAM, 1XCYCLE
     Route: 042
     Dates: start: 20210212, end: 20210212
  2. OXALIPLATIN. [Suspect]
     Active Substance: OXALIPLATIN
     Indication: B-CELL LYMPHOMA
     Dosage: 190 MILLIGRAM 1XCYCLE
     Route: 042
     Dates: start: 20210212, end: 20210212
  3. CORDARONE [Concomitant]
     Active Substance: AMIODARONE HYDROCHLORIDE
     Indication: ARRHYTHMIA
     Dosage: 200 MILLIGRAM, TID
     Route: 048
     Dates: start: 20210215
  4. CEFTRIAXONE. [Concomitant]
     Active Substance: CEFTRIAXONE
     Indication: URINARY TRACT INFECTION
     Dosage: 2 GRAM, QD
     Route: 042
     Dates: start: 20210217
  5. PEGFILGRASTIM [Suspect]
     Active Substance: PEGFILGRASTIM
     Indication: PRODUCT USED FOR UNKNOWN INDICATION
     Dosage: 6 MILLIGRAM
     Route: 058
     Dates: start: 20210215, end: 20210215
  6. BISOPROLOL [Concomitant]
     Active Substance: BISOPROLOL
     Indication: TACHYCARDIA
     Dosage: 5 MILLIGRAM, BID
     Route: 048
     Dates: start: 20210214
  7. REPARIL [DIETHYLAMINE SALICYLATE;ESCIN] [Concomitant]
     Indication: PHLEBITIS
     Dosage: 20 MILLIGRAM, QD
     Route: 048
     Dates: start: 202011
  8. ACICLOVIR [Concomitant]
     Active Substance: ACYCLOVIR
     Indication: PROPHYLAXIS
     Dosage: 400 MILLIGRAM, TID
     Route: 048
     Dates: start: 20210210
  9. NIVOLUMAB [Suspect]
     Active Substance: NIVOLUMAB
     Indication: NON-HODGKIN^S LYMPHOMA UNSPECIFIED HISTOLOGY AGGRESSIVE
     Dosage: 225 MILLIGRAM, 1 CYCLE
     Route: 042
     Dates: start: 20210211, end: 20210211
  10. TAMSULOSIN [Concomitant]
     Active Substance: TAMSULOSIN
     Indication: PROSTATITIS
     Dosage: 0.4 MILLIGRAM, QD
     Route: 048
     Dates: start: 201404

REACTIONS (3)
  - Liver function test abnormal [Recovered/Resolved]
  - Atrial flutter [Recovered/Resolved]
  - Neutropenia [Recovered/Resolved]

NARRATIVE: CASE EVENT DATE: 20210211
